FAERS Safety Report 22000071 (Version 1)
Quarter: 2023Q1

REPORT INFORMATION
  Report Type: Spontaneous
  Country: SZ (occurrence: None)
  Receive Date: 20230216
  Receipt Date: 20230216
  Transmission Date: 20230417
  Serious: Yes (Disabling, Other)
  Sender: FDA-Public Use
  Company Number: 2023A039288

PATIENT
  Age: 39 Year
  Sex: Female
  Weight: 54 kg

DRUGS (6)
  1. ESOMEPRAZOLE [Suspect]
     Active Substance: ESOMEPRAZOLE
     Indication: Gastrooesophageal reflux disease
     Dosage: 40 MILLIGRAM, 1/DAY
     Route: 048
  2. PROMAZINE HYDROCHLORIDE [Suspect]
     Active Substance: PROMAZINE HYDROCHLORIDE
     Indication: Product used for unknown indication
     Dosage: 50 MILLIGRAM, 1/DAY
     Route: 048
     Dates: start: 2013, end: 20230106
  3. PROMAZINE HYDROCHLORIDE [Suspect]
     Active Substance: PROMAZINE HYDROCHLORIDE
     Indication: Product used for unknown indication
     Dosage: 300 MILLIGRAM, 1/DAY
     Route: 048
     Dates: start: 2008, end: 2012
  4. VENLAFAXINE HYDROCHLORIDE [Suspect]
     Active Substance: VENLAFAXINE HYDROCHLORIDE
     Indication: Depression
     Dosage: 75 MILLIGRAM, 1/DAY
     Route: 048
     Dates: start: 2012
  5. CONCERTA [Suspect]
     Active Substance: METHYLPHENIDATE HYDROCHLORIDE
     Indication: Attention deficit hyperactivity disorder
     Dosage: 54 MILLIGRAM, 1/DAY
     Route: 048
     Dates: start: 2013
  6. ZOLPIDEM [Concomitant]
     Active Substance: ZOLPIDEM TARTRATE
     Indication: Sleep disorder
     Dosage: 10 MILLIGRAM, AS NEEDED10.0MG INTERMITTENT
     Route: 048

REACTIONS (1)
  - Choroid melanoma [Not Recovered/Not Resolved]

NARRATIVE: CASE EVENT DATE: 20220328
